FAERS Safety Report 6873421-5 (Version None)
Quarter: 2010Q3

REPORT INFORMATION
  Report Type: 
  Country: None (occurrence: None)
  Receive Date: 20100723
  Receipt Date: 20100719
  Transmission Date: 20110219
  Serious: Yes (Life-Threatening, Hospitalization)
  Sender: FDA-Public Use
  Company Number: PHHO2010DE09025

PATIENT
  Sex: Male

DRUGS (3)
  1. NEORAL [Suspect]
     Indication: LIVER TRANSPLANT
     Dosage: UNK
     Route: 048
  2. NO TREATMENT RECEIVED NOMED [Suspect]
  3. MYCOPHENOLATE MOFETIL [Suspect]
     Indication: LIVER TRANSPLANT
     Dosage: 2000 MG, DAILY
     Route: 042
     Dates: start: 20081018, end: 20081019

REACTIONS (3)
  - COMPLICATIONS OF TRANSPLANTED LIVER [None]
  - LIVER GRAFT LOSS [None]
  - LIVER TRANSPLANT [None]
